FAERS Safety Report 12174204 (Version 1)
Quarter: 2016Q1

REPORT INFORMATION
  Report Type: Spontaneous
  Country: NZ (occurrence: NZ)
  Receive Date: 20160314
  Receipt Date: 20160314
  Transmission Date: 20160526
  Serious: Yes (Disabling)
  Sender: FDA-Public Use
  Company Number: NZ-ASTRAZENECA-2016SE25999

PATIENT
  Sex: Male
  Weight: 125 kg

DRUGS (10)
  1. CILAZAPRIL [Concomitant]
     Active Substance: CILAZAPRIL ANHYDROUS
  2. BEZALIP [Concomitant]
     Active Substance: BEZAFIBRATE
  3. INSULIN INJECTION, ISOPHANE [Concomitant]
     Active Substance: INSULIN HUMAN
  4. METOPROLOL. [Concomitant]
     Active Substance: METOPROLOL
  5. FRUSEMIDE [Concomitant]
     Active Substance: FUROSEMIDE
  6. ONGLYZA [Suspect]
     Active Substance: SAXAGLIPTIN HYDROCHLORIDE
     Indication: DIABETES MELLITUS
     Route: 048
     Dates: start: 201509, end: 20150916
  7. ATORVASTATIN [Concomitant]
     Active Substance: ATORVASTATIN
  8. METFORMIN [Concomitant]
     Active Substance: METFORMIN HYDROCHLORIDE
  9. GLIPIZIDE. [Concomitant]
     Active Substance: GLIPIZIDE
  10. ASPIRIN. [Concomitant]
     Active Substance: ASPIRIN

REACTIONS (2)
  - Eosinophilia [Unknown]
  - Diarrhoea [Unknown]
